FAERS Safety Report 9787256 (Version 2)
Quarter: 2014Q1

REPORT INFORMATION
  Report Type: Report from Study
  Country: US (occurrence: US)
  Receive Date: 20131230
  Receipt Date: 20140101
  Transmission Date: 20141002
  Serious: Yes (Other)
  Sender: FDA-Public Use
  Company Number: US-ROCHE-1322890

PATIENT
  Sex: 0

DRUGS (26)
  1. HERCEPTIN [Suspect]
     Indication: BREAST CANCER
     Route: 065
  2. HERCEPTIN [Suspect]
     Indication: NEUTROPENIA
  3. KADCYLA [Suspect]
     Indication: BREAST CANCER
     Route: 042
     Dates: start: 20130428, end: 20131216
  4. XELODA [Suspect]
     Indication: BREAST CANCER
     Dosage: 14/21 D
     Route: 048
     Dates: start: 201309
  5. ADVAIR DISKUS [Concomitant]
     Indication: CHRONIC OBSTRUCTIVE PULMONARY DISEASE
     Dosage: 100-50MCG TAKE 1 PUFF BY INHALATION BID
     Route: 065
  6. ALBUTEROL SULFATE [Concomitant]
     Dosage: AEROSOL W/ADAPTER. TAKE 1 INHALATION AS DIRECTED
     Route: 065
  7. AROMASIN [Concomitant]
     Dosage: TAKE 1 PO DAILY AS DIRECTED
     Route: 048
  8. AVELOX [Concomitant]
     Dosage: TAKE 1 PO DAILY
     Route: 048
  9. CARVEDILOL [Concomitant]
     Indication: CARDIAC FAILURE CONGESTIVE
     Dosage: TAKE 1 PO BID
     Route: 048
  10. CARVEDILOL [Concomitant]
     Indication: ARTERIAL DISORDER
  11. DEXAMETHASONE [Concomitant]
     Dosage: TAKE 1 PILL FOR 3 DAYS AFTER CHEMOTHERAPY
     Route: 048
  12. FAMOTIDINE [Concomitant]
     Indication: GASTROOESOPHAGEAL REFLUX DISEASE
     Dosage: TAKE 1 PO BID
     Route: 048
  13. KEPPRA [Concomitant]
     Indication: METASTASES TO CENTRAL NERVOUS SYSTEM
     Dosage: TAKE 1 PO Q 12H FOR 30 DAYS ONLY
     Route: 048
  14. KEPPRA [Concomitant]
     Route: 048
     Dates: start: 201306
  15. LAPATINIB DITOSYLATE [Concomitant]
     Dosage: TAKE 5 PO DAILY
     Route: 048
  16. LORAZEPAM [Concomitant]
     Dosage: TAKE 1 PO Q6H PRN NAUSEA
     Route: 048
  17. MEGESTROL ACETATE [Concomitant]
     Dosage: 400MG/10ML SUSP ORAL. TAKE 5ML PO DAILY
     Route: 048
  18. NICOTINE PATCH [Concomitant]
     Dosage: /24HR PATCH TRANSDERMAL, TAKE 1 PATCH AS DIRECTED
     Route: 061
  19. OMEPRAZOLE [Concomitant]
     Dosage: TAKE 1 CAPSULE BY MOUTH DAILY
     Route: 048
  20. PLAVIX [Concomitant]
     Route: 048
  21. POTASSIUM CHLORIDE [Concomitant]
     Dosage: SUSTAINED ACTION. TAKE 1 PO DAILY
     Route: 048
  22. PROCHLORPERAZINE MALEATE [Concomitant]
     Dosage: TAKE 1 PO Q 6H PRN NAUSEA
     Route: 048
  23. TYLENOL EXTRA STRENGTH [Concomitant]
     Dosage: TAKE 2 PO AS DIRECTED
     Route: 048
  24. ABRAXANE [Concomitant]
  25. ARIMIDEX [Concomitant]
  26. WELLBUTRIN [Concomitant]
     Dosage: TAKE 1 PO DAILY
     Route: 048

REACTIONS (7)
  - Ejection fraction decreased [Not Recovered/Not Resolved]
  - Acute myocardial infarction [Unknown]
  - Hepatic lesion [Unknown]
  - Osteosclerosis [Unknown]
  - Disease progression [Unknown]
  - Liver function test abnormal [Unknown]
  - Lymphadenopathy [Unknown]
